FAERS Safety Report 13163554 (Version 1)
Quarter: 2017Q1

REPORT INFORMATION
  Report Type: Spontaneous
  Country: US (occurrence: US)
  Receive Date: 20170130
  Receipt Date: 20170130
  Transmission Date: 20170428
  Serious: No
  Sender: FDA-Public Use
  Company Number: US-TEVA-729618ACC

PATIENT
  Age: 35 Year
  Sex: Female

DRUGS (4)
  1. BACLOFEN. [Concomitant]
     Active Substance: BACLOFEN
  2. RECLIPSEN [Concomitant]
     Active Substance: DESOGESTREL\ETHINYL ESTRADIOL
  3. COPAXONE [Suspect]
     Active Substance: GLATIRAMER ACETATE
     Indication: MULTIPLE SCLEROSIS
     Dosage: 17.1429 MILLIGRAM DAILY; PREFILLED SYRINGE
     Route: 058
     Dates: start: 20151203
  4. AMANTADINE [Concomitant]
     Active Substance: AMANTADINE

REACTIONS (2)
  - Injection site reaction [Unknown]
  - Memory impairment [Unknown]

NARRATIVE: CASE EVENT DATE: 201611
